FAERS Safety Report 20126306 (Version 1)
Quarter: 2021Q4

REPORT INFORMATION
  Report Type: Report from Study
  Country: NL (occurrence: NL)
  Receive Date: 20211129
  Receipt Date: 20211129
  Transmission Date: 20220303
  Serious: Yes (Other)
  Sender: FDA-Public Use
  Company Number: NL-IPSEN Group, Research and Development-2021-22928

PATIENT
  Age: 57 Year
  Sex: Female

DRUGS (7)
  1. EVEROLIMUS [Suspect]
     Active Substance: EVEROLIMUS
     Indication: Product used for unknown indication
     Dosage: UNK
     Route: 065
  2. LANREOTIDE ACETATE [Suspect]
     Active Substance: LANREOTIDE ACETATE
     Indication: Neuroendocrine tumour
     Dosage: 120 MILLIGRAM, 4XW
     Route: 058
  3. LANREOTIDE ACETATE [Suspect]
     Active Substance: LANREOTIDE ACETATE
     Dosage: 120 MILLIGRAM, BIWEEKLY
     Route: 058
     Dates: start: 20150715
  4. LANREOTIDE ACETATE [Suspect]
     Active Substance: LANREOTIDE ACETATE
     Dosage: 120 MILLIGRAM, Q2W
     Route: 058
     Dates: start: 202107, end: 202108
  5. LANREOTIDE ACETATE [Suspect]
     Active Substance: LANREOTIDE ACETATE
     Dosage: 120 MILLIGRAM, 4XW
     Route: 058
     Dates: start: 202109
  6. XERMELO [Concomitant]
     Active Substance: TELOTRISTAT ETHYL
     Dosage: UNK
  7. SOLIFENACIN\TAMSULOSIN [Concomitant]
     Active Substance: SOLIFENACIN\TAMSULOSIN
     Dosage: UNK

REACTIONS (9)
  - Diarrhoea [Recovering/Resolving]
  - Oedema peripheral [Not Recovered/Not Resolved]
  - Renal impairment [Not Recovered/Not Resolved]
  - Off label use [Unknown]
  - Localised oedema [Not Recovered/Not Resolved]
  - Oedema [Not Recovered/Not Resolved]
  - Kidney congestion [Unknown]
  - Biliary colic [Unknown]
  - Ileus [Unknown]

NARRATIVE: CASE EVENT DATE: 20150715
